FAERS Safety Report 20087677 (Version 1)
Quarter: 2021Q4

REPORT INFORMATION
  Report Type: Spontaneous
  Country: SE (occurrence: SE)
  Receive Date: 20211118
  Receipt Date: 20211118
  Transmission Date: 20220303
  Serious: Yes (Hospitalization)
  Sender: FDA-Public Use
  Company Number: None

PATIENT
  Age: 42 Year
  Sex: Female

DRUGS (5)
  1. ETANERCEPT [Suspect]
     Active Substance: ETANERCEPT
     Indication: Spondylitis
     Dosage: 50 MG 1 DOSE (50 MG) WEEKLY
     Route: 058
     Dates: start: 20210830, end: 20210913
  2. ETORICOXIB SANDOZ [Concomitant]
     Indication: Product used for unknown indication
     Dosage: 90 MG 1 TABLET DAILY
     Route: 048
     Dates: start: 20201214
  3. SULFASALAZINE [Concomitant]
     Active Substance: SULFASALAZINE
     Indication: Product used for unknown indication
     Dosage: 500 MG 2 TABLETS TWICE DAILY, ENTEROTABLET
     Route: 048
     Dates: start: 20201222
  4. METHOTREXATE [Concomitant]
     Active Substance: METHOTREXATE
     Indication: Product used for unknown indication
     Dosage: 2.5 MG 6 TABLETS ONE DAY A WEEK (ORION PHARMA)
     Route: 048
     Dates: start: 20200701
  5. FOLSYRA EVOLAN [Concomitant]
     Indication: Product used for unknown indication
     Dosage: 5 MG 1 TABLET 2 DAYS / WEEK, FOLIC ACID HYDRATE, ANHYDROUS
     Route: 048
     Dates: start: 20210703

REACTIONS (3)
  - Diplopia [Not Recovered/Not Resolved]
  - Dizziness [Not Recovered/Not Resolved]
  - Product use in unapproved indication [Unknown]

NARRATIVE: CASE EVENT DATE: 20210918
